FAERS Safety Report 25401967 (Version 1)
Quarter: 2025Q2

REPORT INFORMATION
  Report Type: Spontaneous
  Country: US (occurrence: US)
  Receive Date: 20250605
  Receipt Date: 20250605
  Transmission Date: 20250717
  Serious: No
  Sender: FRESENIUS KABI
  Company Number: US-FreseniusKabi-FK202507247

PATIENT
  Sex: Female
  Weight: 66.2 kg

DRUGS (3)
  1. DIPHENHYDRAMINE [Suspect]
     Active Substance: DIPHENHYDRAMINE
     Indication: Infusion related reaction
     Route: 042
     Dates: start: 20250430
  2. METHYLPREDNISOLONE [Concomitant]
     Active Substance: METHYLPREDNISOLONE
     Indication: Infusion related reaction
     Route: 042
     Dates: start: 20250430
  3. FAMOTIDINE [Concomitant]
     Active Substance: FAMOTIDINE
     Indication: Infusion related reaction
     Route: 042
     Dates: start: 20250430

REACTIONS (3)
  - Muscular weakness [Not Recovered/Not Resolved]
  - Muscle spasms [Unknown]
  - Gait disturbance [Unknown]

NARRATIVE: CASE EVENT DATE: 20250430
